FAERS Safety Report 14486232 (Version 2)
Quarter: 2018Q1

REPORT INFORMATION
  Report Type: Spontaneous
  Country: US (occurrence: US)
  Receive Date: 20180205
  Receipt Date: 20180221
  Transmission Date: 20180509
  Serious: No
  Sender: FDA-Public Use
  Company Number: US-TEVA-2018-US-853263

PATIENT
  Sex: Female

DRUGS (1)
  1. PARAGARD T 380A [Suspect]
     Active Substance: COPPER
     Indication: CONTRACEPTION
     Route: 065
     Dates: start: 2004

REACTIONS (5)
  - Stress [Unknown]
  - Frustration tolerance decreased [Unknown]
  - Discomfort [Unknown]
  - Menstruation irregular [Unknown]
  - Complication of device removal [Recovered/Resolved]
